FAERS Safety Report 12501874 (Version 1)
Quarter: 2016Q2

REPORT INFORMATION
  Report Type: Spontaneous
  Country: US (occurrence: US)
  Receive Date: 20160627
  Receipt Date: 20160627
  Transmission Date: 20160815
  Serious: No
  Sender: FDA-Public Use
  Company Number: US-BAYER-2016-125310

PATIENT
  Age: 20 Year
  Sex: Male

DRUGS (1)
  1. CLARITIN-D 24 HOUR [Suspect]
     Active Substance: LORATADINE\PSEUDOEPHEDRINE SULFATE
     Indication: RESPIRATORY FUME INHALATION DISORDER
     Dosage: 1 DF, QD
     Route: 048

REACTIONS (3)
  - Expired product administered [None]
  - Expired product administered [None]
  - Product use issue [None]

NARRATIVE: CASE EVENT DATE: 20160623
